FAERS Safety Report 6899421-7 (Version None)
Quarter: 2010Q3

REPORT INFORMATION
  Report Type: 
  Country: None (occurrence: None)
  Receive Date: 20100803
  Receipt Date: 20090614
  Transmission Date: 20110219
  Serious: No
  Sender: FDA-Public Use
  Company Number: US-PFIZER INC-2009185718

PATIENT
  Sex: Male

DRUGS (1)
  1. NEURONTIN [Suspect]
     Dosage: 1200 MG, 2-3 TIMES

REACTIONS (1)
  - PAIN [None]
